FAERS Safety Report 18423571 (Version 5)
Quarter: 2022Q2

REPORT INFORMATION
  Report Type: Spontaneous
  Country: JP (occurrence: JP)
  Receive Date: 20201024
  Receipt Date: 20220427
  Transmission Date: 20220721
  Serious: Yes (Hospitalization)
  Sender: FDA-Public Use
  Company Number: JP-DSJP-DSJ-2020-130341

PATIENT
  Age: 87 Year
  Sex: Female
  Weight: 60 kg

DRUGS (3)
  1. DENOSUMAB [Suspect]
     Active Substance: DENOSUMAB
     Indication: Osteoporosis
     Dosage: 60 MG, ONCE EVERY 6 MO
     Route: 058
     Dates: start: 20190802, end: 20190802
  2. ALFACALCIDOL [Suspect]
     Active Substance: ALFACALCIDOL
     Indication: Product used for unknown indication
     Dosage: 0.5 UG, QD
     Route: 048
     Dates: start: 20190802, end: 2019
  3. ALFACALCIDOL [Suspect]
     Active Substance: ALFACALCIDOL
     Dosage: 1UG/DAY
     Route: 048

REACTIONS (3)
  - Hyperparathyroidism secondary [Recovered/Resolved]
  - Hypocalcaemia [Recovered/Resolved]
  - Blood calcium increased [Unknown]

NARRATIVE: CASE EVENT DATE: 20190923
